FAERS Safety Report 7353037-7 (Version None)
Quarter: 2011Q1

REPORT INFORMATION
  Report Type: 
  Country: None (occurrence: None)
  Receive Date: 20110315
  Receipt Date: 20110311
  Transmission Date: 20110831
  Serious: Yes (Congenital Anomaly)
  Sender: FDA-Public Use
  Company Number: A0918065A

PATIENT
  Sex: Male

DRUGS (5)
  1. PAXIL [Suspect]
     Dosage: 20MG UNKNOWN
     Route: 064
  2. SYNTHROID [Concomitant]
     Route: 064
  3. ZOLOFT [Concomitant]
     Route: 064
  4. PAROXETINE HYDROCHLORIDE [Suspect]
     Dosage: 20MG UNKNOWN
     Route: 064
     Dates: start: 20050329
  5. PAXIL CR [Suspect]
     Dosage: 25MG UNKNOWN
     Route: 064
     Dates: start: 20050101

REACTIONS (3)
  - CARDIAC MURMUR [None]
  - DRUG EXPOSURE DURING PREGNANCY [None]
  - VENOUS BRUIT [None]
